FAERS Safety Report 4426116-1 (Version None)
Quarter: 2004Q3

REPORT INFORMATION
  Report Type: 
  Country: None (occurrence: None)
  Receive Date: 20040811
  Receipt Date: 20040805
  Transmission Date: 20050211
  Serious: Yes (Hospitalization)
  Sender: FDA-Public Use
  Company Number: 2004UW16600

PATIENT
  Age: 63 Year
  Sex: Female
  Weight: 54.4316 kg

DRUGS (13)
  1. RHINOCORT [Suspect]
     Indication: DYSPNOEA
     Dosage: 2 SPRAY DAILY IN
     Route: 055
  2. RHINOCORT [Suspect]
     Indication: SNORING
     Dosage: 2 SPRAY DAILY IN
     Route: 055
  3. DARVOCET-N 100 [Concomitant]
  4. PREMPRO [Concomitant]
  5. CALCIUM [Concomitant]
  6. LOTRIMIN [Concomitant]
  7. VIOXX [Concomitant]
  8. VAGISAN [Concomitant]
  9. NEURONTIN [Concomitant]
  10. ACYCLOVIR [Concomitant]
  11. ASPIRIN [Concomitant]
  12. PHENYTOIN [Concomitant]
  13. METHOCARBAMOL [Concomitant]

REACTIONS (6)
  - BLOOD PRESSURE INCREASED [None]
  - HERPES ZOSTER [None]
  - LYMPHADENOPATHY [None]
  - NASOPHARYNGITIS [None]
  - SELF-MEDICATION [None]
  - TREATMENT NONCOMPLIANCE [None]
